FAERS Safety Report 8275299-4 (Version None)
Quarter: 2012Q2

REPORT INFORMATION
  Report Type: 
  Country: None (occurrence: None)
  Receive Date: 20120411
  Receipt Date: 20120404
  Transmission Date: 20120825
  Serious: Yes (Death)
  Sender: FDA-Public Use
  Company Number: CA-ROXANE LABORATORIES, INC.-2012-RO-00992RO

PATIENT
  Age: 56 Year
  Sex: Female

DRUGS (2)
  1. LITHIUM CARBONATE [Suspect]
     Indication: BIPOLAR I DISORDER
  2. TOPIRAMATE [Suspect]
     Indication: BIPOLAR I DISORDER

REACTIONS (2)
  - COMPLETED SUICIDE [None]
  - BLOOD CREATININE INCREASED [None]
